FAERS Safety Report 5865867-9 (Version None)
Quarter: 2008Q3

REPORT INFORMATION
  Report Type: 
  Country: None (occurrence: None)
  Receive Date: 20080829
  Receipt Date: 20080819
  Transmission Date: 20090109
  Serious: Yes (Life-Threatening, Hospitalization)
  Sender: FDA-Public Use
  Company Number: FR-PFIZER INC-2008014483

PATIENT
  Sex: Male
  Weight: 63 kg

DRUGS (6)
  1. SUTENT [Suspect]
     Indication: RENAL CANCER
     Route: 048
  2. SIROLIMUS [Concomitant]
     Route: 048
  3. MYCOPHENOLATE MOFETIL [Concomitant]
     Route: 048
  4. ESOMEPRAZOLE MAGNESIUM [Concomitant]
     Route: 048
  5. FERROUS SULFATE TAB [Concomitant]
     Route: 048
  6. ALL OTHER THERAPEUTIC PRODUCTS [Concomitant]
     Route: 058

REACTIONS (1)
  - RENAL FAILURE [None]
